FAERS Safety Report 7057618-X (Version None)
Quarter: 2010Q4

REPORT INFORMATION
  Report Type: 
  Country: None (occurrence: None)
  Receive Date: 20101022
  Receipt Date: 20101014
  Transmission Date: 20110411
  Serious: Yes (Hospitalization)
  Sender: FDA-Public Use
  Company Number: NL-ROCHE-734103

PATIENT
  Sex: Male
  Weight: 73 kg

DRUGS (3)
  1. BEVACIZUMAB [Suspect]
     Indication: GLIOBLASTOMA
     Dosage: TEMPORARILY DISCONTINUED. LAST DOSE PRIOR TO SAE: 13/10/2010.
     Route: 042
     Dates: start: 20100903
  2. KEPPRA [Concomitant]
     Dosage: LAST DATE PRIOR TO SAE : 13/10/2010. INDICATION: 'INSULT'
     Route: 048
     Dates: start: 20100208
  3. NEXIUM [Concomitant]
     Indication: GASTRIC DISORDER
     Dosage: LAST DOSE PRIOR TO SAE: 13/10/2010. INDICATION: PREVIOUS STOMACH COMPLAINTS.
     Route: 048
     Dates: start: 20100412

REACTIONS (1)
  - FEELING COLD [None]
